FAERS Safety Report 8224563-3 (Version None)
Quarter: 2012Q1

REPORT INFORMATION
  Report Type: 
  Country: None (occurrence: None)
  Receive Date: 20120321
  Receipt Date: 20120316
  Transmission Date: 20120608
  Serious: No
  Sender: FDA-Public Use
  Company Number: US-PFIZER INC-2012063386

PATIENT
  Sex: Female

DRUGS (2)
  1. PHENOBARBITAL [Concomitant]
     Indication: EPILEPSY
     Dosage: 64.8 MG, 2X/DAY
  2. LYRICA [Suspect]
     Indication: FIBROMYALGIA
     Dosage: 50 MG, DAILY
     Route: 048
     Dates: start: 20120201

REACTIONS (3)
  - GAIT DISTURBANCE [None]
  - FEELING DRUNK [None]
  - DIZZINESS [None]
